FAERS Safety Report 24055932 (Version 1)
Quarter: 2024Q3

REPORT INFORMATION
  Report Type: Spontaneous
  Country: MY (occurrence: MY)
  Receive Date: 20240705
  Receipt Date: 20240705
  Transmission Date: 20241017
  Serious: Yes (Other)
  Sender: ALCON
  Company Number: MY-ALCON LABORATORIES-ALC2024MY003113

PATIENT
  Age: 16 Day
  Sex: Male

DRUGS (1)
  1. ATROPINE SULFATE [Suspect]
     Active Substance: ATROPINE SULFATE
     Indication: Salivary hypersecretion
     Dosage: 1 GTT DROP(S), Q8H
     Route: 060

REACTIONS (2)
  - Abdominal distension [Recovered/Resolved]
  - Apnoea [Recovered/Resolved]
